FAERS Safety Report 7522461-1 (Version None)
Quarter: 2011Q2

REPORT INFORMATION
  Report Type: 
  Country: None (occurrence: None)
  Receive Date: 20110603
  Receipt Date: 20110525
  Transmission Date: 20111010
  Serious: Yes (Hospitalization, Other)
  Sender: FDA-Public Use
  Company Number: PT-AMGEN-PRTSP2010003276

PATIENT
  Age: 57 Year
  Sex: Female
  Weight: 78 kg

DRUGS (10)
  1. ENBREL [Suspect]
     Indication: RHEUMATOID ARTHRITIS
     Dosage: 50 MG, WEEKLY
     Route: 058
     Dates: start: 20010418, end: 20071101
  2. SYMBICORT [Concomitant]
     Indication: PULMONARY FIBROSIS
     Dosage: UNK
  3. OVESTIN [Concomitant]
     Dosage: UNK
  4. METICORTEN [Concomitant]
     Indication: RHEUMATOID ARTHRITIS
     Dosage: 5 MG, UNK
     Route: 048
     Dates: start: 20010101
  5. METHOTREXATE [Concomitant]
     Indication: RHEUMATOID ARTHRITIS
     Dosage: 10 MG, UNK
     Route: 048
     Dates: start: 20010101, end: 20030101
  6. ENBREL [Suspect]
     Dosage: 50 MG, WEEKLY
     Route: 058
     Dates: start: 20080601, end: 20101028
  7. FLUIMUCIL                          /00082801/ [Concomitant]
     Indication: PULMONARY FIBROSIS
     Dosage: UNK
  8. VITAMIN C                          /00008001/ [Concomitant]
     Dosage: UNK
  9. CALCIUM CARBONATE W/COLECALCIFEROL [Concomitant]
     Indication: OSTEOPOROSIS
     Dosage: 600MG+400MG
     Route: 048
     Dates: start: 20060101
  10. OMEPRAZOLE [Concomitant]
     Indication: PROPHYLAXIS
     Dosage: 20 MG, UNK
     Route: 048
     Dates: start: 20060101

REACTIONS (5)
  - HUMAN PAPILLOMA VIRUS TEST POSITIVE [None]
  - URINARY TRACT INFECTION [None]
  - HYPERGAMMAGLOBULINAEMIA BENIGN MONOCLONAL [None]
  - KERATITIS [None]
  - CERVICAL DYSPLASIA [None]
